FAERS Safety Report 24208531 (Version 1)
Quarter: 2024Q3

REPORT INFORMATION
  Report Type: Report from Study
  Country: US (occurrence: US)
  Receive Date: 20240814
  Receipt Date: 20240814
  Transmission Date: 20241017
  Serious: No
  Sender: ALEXION PHARMACEUTICALS
  Company Number: US-ALXN-202408USA000354US

PATIENT
  Age: 71 Year
  Sex: Female

DRUGS (1)
  1. STRENSIQ [Suspect]
     Active Substance: ASFOTASE ALFA
     Indication: Hypophosphatasia
     Dosage: 148 MILLIGRAM, TIW
     Route: 058
     Dates: start: 202406, end: 202408

REACTIONS (4)
  - Peripheral swelling [Recovering/Resolving]
  - Product dose omission issue [Recovering/Resolving]
  - Fatigue [Unknown]
  - Injection site rash [Recovering/Resolving]

NARRATIVE: CASE EVENT DATE: 20240701
